FAERS Safety Report 9996390 (Version 1)
Quarter: 2014Q1

REPORT INFORMATION
  Report Type: Spontaneous
  Country: FR (occurrence: FR)
  Receive Date: 20140311
  Receipt Date: 20140311
  Transmission Date: 20141002
  Serious: Yes (Life-Threatening)
  Sender: FDA-Public Use
  Company Number: FR-SA-2014SA025632

PATIENT
  Age: 84 Year
  Sex: Female

DRUGS (3)
  1. LASILIX [Suspect]
     Indication: PRODUCT USED FOR UNKNOWN INDICATION
     Route: 048
  2. COZAAR [Suspect]
     Indication: HYPERTENSION
     Route: 048
  3. LERCAN [Concomitant]

REACTIONS (4)
  - Renal failure acute [Recovering/Resolving]
  - Malaise [Recovering/Resolving]
  - Bradycardia [Recovering/Resolving]
  - Oliguria [Recovering/Resolving]
